FAERS Safety Report 9929487 (Version 4)
Quarter: 2014Q2

REPORT INFORMATION
  Report Type: Spontaneous
  Country: US (occurrence: US)
  Receive Date: 20140227
  Receipt Date: 20140604
  Transmission Date: 20141212
  Serious: Yes (Death, Other)
  Sender: FDA-Public Use
  Company Number: US-GLAXOSMITHKLINE-A1062751A

PATIENT
  Age: 70 Year
  Sex: Male

DRUGS (2)
  1. VOTRIENT [Suspect]
     Indication: NEOPLASM MALIGNANT
     Route: 048
     Dates: start: 20130422, end: 201304
  2. TAFINLAR [Suspect]
     Indication: MALIGNANT MELANOMA
     Dosage: 75MG UNKNOWN
     Route: 065
     Dates: start: 20131219

REACTIONS (5)
  - Malignant neoplasm progression [Fatal]
  - Endotracheal intubation [Not Recovered/Not Resolved]
  - Neoplasm progression [Unknown]
  - Drug ineffective [Unknown]
  - Anaplastic thyroid cancer [Unknown]
